FAERS Safety Report 6994650-6 (Version None)
Quarter: 2010Q3

REPORT INFORMATION
  Report Type: 
  Country: None (occurrence: None)
  Receive Date: 20100915
  Receipt Date: 20100915
  Transmission Date: 20110219
  Serious: Yes (Life-Threatening, Hospitalization)
  Sender: FDA-Public Use
  Company Number: None

PATIENT
  Sex: Female

DRUGS (1)
  1. FENTANYL [Suspect]
     Indication: PAIN MANAGEMENT
     Dosage: ONE PATCH EVERY 72 HOURS TRANSDERMAL
     Route: 062
     Dates: start: 20100826, end: 20100905

REACTIONS (7)
  - DYSPNOEA [None]
  - FEELING ABNORMAL [None]
  - LOSS OF CONSCIOUSNESS [None]
  - OVERDOSE [None]
  - SENSATION OF HEAVINESS [None]
  - SOMNOLENCE [None]
  - VOMITING [None]
